FAERS Safety Report 5122020-4 (Version None)
Quarter: 2006Q4

REPORT INFORMATION
  Report Type: 
  Country: None (occurrence: None)
  Receive Date: 20061004
  Receipt Date: 20061004
  Transmission Date: 20070319
  Serious: Yes (Life-Threatening, Hospitalization)
  Sender: FDA-Public Use
  Company Number: None

PATIENT
  Age: 57 Year
  Sex: Male
  Weight: 63.1 kg

DRUGS (1)
  1. FERRIC NA GLUCONATE COMPLEX [Suspect]

REACTIONS (4)
  - CONVULSION [None]
  - HYPOTENSION [None]
  - NAUSEA [None]
  - VOMITING [None]
